FAERS Safety Report 14856391 (Version 1)
Quarter: 2018Q2

REPORT INFORMATION
  Report Type: Spontaneous
  Country: US (occurrence: US)
  Receive Date: 20180507
  Receipt Date: 20180507
  Transmission Date: 20180711
  Serious: No
  Sender: FDA-Public Use
  Company Number: US-ROCHE-2056566

PATIENT
  Sex: Male

DRUGS (17)
  1. ESBRIET [Suspect]
     Active Substance: PIRFENIDONE
     Indication: IDIOPATHIC PULMONARY FIBROSIS
     Route: 048
     Dates: start: 20150403
  2. ZYRTEC [Concomitant]
     Active Substance: CETIRIZINE HYDROCHLORIDE
  3. FISH OIL [Concomitant]
     Active Substance: FISH OIL
  4. TYLENOL [Concomitant]
     Active Substance: ACETAMINOPHEN
  5. LASIX [Concomitant]
     Active Substance: FUROSEMIDE
  6. DIOVAN [Concomitant]
     Active Substance: VALSARTAN
  7. FLUTICASONE PROPIONATE. [Concomitant]
     Active Substance: FLUTICASONE PROPIONATE
  8. RANITIDINE. [Concomitant]
     Active Substance: RANITIDINE
  9. TAMSULOSIN [Concomitant]
     Active Substance: TAMSULOSIN
  10. ESCITALOPRAM [Concomitant]
     Active Substance: ESCITALOPRAM OXALATE
  11. METOPROLOL SUCCINATE. [Concomitant]
     Active Substance: METOPROLOL SUCCINATE
  12. ASPIRIN. [Concomitant]
     Active Substance: ASPIRIN
  13. BENADRYL [Concomitant]
     Active Substance: DIPHENHYDRAMINE HYDROCHLORIDE
  14. ZETIA [Concomitant]
     Active Substance: EZETIMIBE
  15. FUROSEMIDE. [Concomitant]
     Active Substance: FUROSEMIDE
  16. VALSARTAN. [Concomitant]
     Active Substance: VALSARTAN
  17. CRESTOR [Concomitant]
     Active Substance: ROSUVASTATIN CALCIUM

REACTIONS (2)
  - Dizziness [Unknown]
  - Epistaxis [Unknown]
